FAERS Safety Report 25699764 (Version 2)
Quarter: 2025Q3

REPORT INFORMATION
  Report Type: Spontaneous
  Country: EU (occurrence: EU)
  Receive Date: 20250819
  Receipt Date: 20250912
  Transmission Date: 20251020
  Serious: Yes (Other)
  Sender: ALEXION PHARMACEUTICALS
  Company Number: EU-002147023-NVSC2019DE055167

PATIENT
  Sex: Female
  Weight: 58 kg

DRUGS (3)
  1. FULVESTRANT [Suspect]
     Active Substance: FULVESTRANT
     Indication: Breast cancer metastatic
     Dosage: 500 MG (DAILY DOSE), QMO (EVERY 4 WEEKS)
     Dates: start: 20190604, end: 20200128
  2. FULVESTRANT [Suspect]
     Active Substance: FULVESTRANT
  3. KISQALI [Suspect]
     Active Substance: RIBOCICLIB SUCCINATE
     Indication: Breast cancer metastatic
     Dosage: 600 MG, QD (SCHEMA 21 DAYS INTAKE, THAN 7 DAYS PAUSE)
     Dates: start: 20190604, end: 20200204

REACTIONS (3)
  - Tooth disorder [Recovered/Resolved]
  - Metastases to bone [Not Recovered/Not Resolved]
  - Metastases to skin [Recovering/Resolving]

NARRATIVE: CASE EVENT DATE: 20190903
